FAERS Safety Report 7722166-8 (Version None)
Quarter: 2011Q3

REPORT INFORMATION
  Report Type: 
  Country: None (occurrence: None)
  Receive Date: 20110825
  Receipt Date: 20110816
  Transmission Date: 20111222
  Serious: Yes (Disabling)
  Sender: FDA-Public Use
  Company Number: 956475

PATIENT
  Age: 72 Year
  Sex: Male
  Weight: 83.3 kg

DRUGS (4)
  1. ONDANSETRON [Concomitant]
  2. CAPECITABINE [Concomitant]
  3. OXALIPLATIN [Suspect]
     Indication: COLON CANCER METASTATIC
     Dosage: 255 MG MILLIGRAM(S), INTRAVENOUS (NOT OTHERWISE SPECIFIED)
     Route: 042
     Dates: start: 20110318
  4. METOCLOPRAMIDE [Concomitant]

REACTIONS (1)
  - DEAFNESS NEUROSENSORY [None]
